FAERS Safety Report 10477486 (Version 7)
Quarter: 2015Q4

REPORT INFORMATION
  Report Type: Report from Study
  Country: JP (occurrence: JP)
  Receive Date: 20140926
  Receipt Date: 20151209
  Transmission Date: 20160304
  Serious: Yes (Other)
  Sender: FDA-Public Use
  Company Number: JP-JNJFOC-20140718540

PATIENT
  Age: 64 Year
  Sex: Female
  Weight: 54 kg

DRUGS (5)
  1. EPADEL S [Concomitant]
     Active Substance: ICOSAPENT ETHYL
     Indication: PROPHYLAXIS
     Route: 048
     Dates: start: 20140117, end: 20140701
  2. SOVRIAD [Suspect]
     Active Substance: SIMEPREVIR
     Indication: CHRONIC HEPATITIS C
     Route: 048
     Dates: start: 20140117, end: 20140411
  3. RIBAVIRIN. [Suspect]
     Active Substance: RIBAVIRIN
     Indication: CHRONIC HEPATITIS C
     Route: 048
     Dates: start: 20140117, end: 20140205
  4. PEGASYS [Suspect]
     Active Substance: PEGINTERFERON ALFA-2A
     Indication: CHRONIC HEPATITIS C
     Route: 058
     Dates: start: 20140117, end: 20140627
  5. RIBAVIRIN. [Suspect]
     Active Substance: RIBAVIRIN
     Indication: CHRONIC HEPATITIS C
     Route: 048
     Dates: start: 20140206, end: 20140701

REACTIONS (5)
  - Oral candidiasis [Recovered/Resolved]
  - Serum ferritin increased [Unknown]
  - Haemoglobin decreased [Recovering/Resolving]
  - White blood cell count decreased [Recovering/Resolving]
  - Platelet count decreased [Recovering/Resolving]

NARRATIVE: CASE EVENT DATE: 20140124
